FAERS Safety Report 9298704 (Version 1)
Quarter: 2013Q2

REPORT INFORMATION
  Report Type: Spontaneous
  Country: CA (occurrence: CA)
  Receive Date: 20130520
  Receipt Date: 20130520
  Transmission Date: 20140414
  Serious: Yes (Life-Threatening, Other)
  Sender: FDA-Public Use
  Company Number: CA-JNJFOC-20130509131

PATIENT
  Age: 82 Year
  Sex: Female

DRUGS (9)
  1. SIMPONI [Suspect]
     Indication: PRODUCT USED FOR UNKNOWN INDICATION
     Dosage: DOSE REPORTED AS ^1.0 DOSAGE FORMS^
     Route: 058
  2. LEFLUNOMIDE [Concomitant]
     Route: 065
  3. CELEBREX [Concomitant]
     Route: 065
  4. EZETROL [Concomitant]
     Route: 065
  5. FLUVASTATIN [Concomitant]
     Route: 065
  6. MULTIVITAMINS [Concomitant]
     Route: 065
  7. TECTA [Concomitant]
     Route: 065
  8. VITAMIN C [Concomitant]
     Route: 065
  9. VITAMIN D [Concomitant]
     Route: 065

REACTIONS (1)
  - Non-Hodgkin^s lymphoma [Not Recovered/Not Resolved]
